FAERS Safety Report 18018963 (Version 3)
Quarter: 2021Q4

REPORT INFORMATION
  Report Type: Spontaneous
  Country: US (occurrence: US)
  Receive Date: 20200714
  Receipt Date: 20211230
  Transmission Date: 20220304
  Serious: Yes (Other)
  Sender: FDA-Public Use
  Company Number: US-GLAXOSMITHKLINE-US2020129844

PATIENT

DRUGS (5)
  1. RANITIDINE [Suspect]
     Active Substance: RANITIDINE
     Indication: Product used for unknown indication
     Dosage: UNK
     Route: 065
     Dates: start: 20080615, end: 20200615
  2. RANITIDINE [Suspect]
     Active Substance: RANITIDINE
     Indication: Hyperchlorhydria
     Dosage: 150 MG, 2X DAY
     Route: 065
     Dates: start: 2008, end: 2018
  3. RANITIDINE [Suspect]
     Active Substance: RANITIDINE
     Indication: Skin cancer
  4. RANITIDINE [Suspect]
     Active Substance: RANITIDINE
     Indication: Hyperchlorhydria
     Dosage: 150 MG, 2X DAY
     Route: 065
     Dates: start: 2008, end: 2018
  5. RANITIDINE [Suspect]
     Active Substance: RANITIDINE
     Indication: Skin cancer

REACTIONS (1)
  - Colorectal cancer [Unknown]
